FAERS Safety Report 8295030-6 (Version None)
Quarter: 2012Q2

REPORT INFORMATION
  Report Type: 
  Country: None (occurrence: None)
  Receive Date: 20120418
  Receipt Date: 20120411
  Transmission Date: 20120825
  Serious: Yes (Life-Threatening, Hospitalization, Other)
  Sender: FDA-Public Use
  Company Number: US-ELI_LILLY_AND_COMPANY-US201204005413

PATIENT
  Sex: Female
  Weight: 89.2 kg

DRUGS (19)
  1. HYDROXYCHLOROQUINE SULFATE [Concomitant]
     Dosage: 200 MG, BID
     Dates: start: 20120124
  2. MULTI-VITAMINS [Concomitant]
     Dosage: 1 DF, QD
     Dates: start: 20120124
  3. PROAIR HFA [Concomitant]
     Dosage: 2 DF, PRN
     Route: 055
  4. AVAPRO [Concomitant]
     Dosage: 75 MG, QD
     Dates: start: 20090430
  5. METOPROLOL SUCCINATE [Concomitant]
     Dosage: 100 MG, QD
     Dates: start: 20120124
  6. URSODIOL [Concomitant]
     Dosage: 300 MG, TID
     Dates: start: 20090401
  7. SYMBICORT [Concomitant]
     Dosage: 2 DF, BID
     Route: 055
     Dates: start: 20090430
  8. FERROUS SULFATE TAB [Concomitant]
     Dosage: 325 MG, QD
     Dates: start: 20120124
  9. ACETAMINOPHEN [Concomitant]
     Indication: PAIN
     Dosage: 1000 MG, PRN
     Dates: start: 20100830
  10. ZETIA [Concomitant]
     Dosage: 10 MG, QD
     Dates: start: 20090401
  11. SPIRONOLACTONE [Concomitant]
     Dosage: 75 MG, QD
     Dates: start: 20100604
  12. OMEPRAZOLE [Concomitant]
     Dosage: 20 MG, QD
     Dates: start: 20000214
  13. ADCIRCA [Suspect]
     Indication: PULMONARY ARTERIAL HYPERTENSION
     Dosage: 40 MG, QD
     Dates: start: 20091001
  14. TYVASO [Concomitant]
     Indication: PULMONARY ARTERIAL HYPERTENSION
     Dosage: 9 DF, QID
  15. LETAIRIS [Concomitant]
     Indication: PULMONARY ARTERIAL HYPERTENSION
     Dosage: 5 MG, QD
     Dates: start: 20100204
  16. OXYGEN [Concomitant]
     Dosage: 2 L, PRN
     Route: 045
  17. GLIMEPIRIDE [Concomitant]
     Dosage: 1 MG, QD
     Dates: start: 20090401
  18. TORSEMIDE [Concomitant]
     Dosage: 100 MG, QD
     Dates: start: 20110721
  19. TRAMADOL HCL [Concomitant]
     Dosage: 50 MG, TID
     Dates: start: 20120130

REACTIONS (6)
  - ASTHMA [None]
  - DYSPNOEA [None]
  - RENAL FAILURE ACUTE [None]
  - CARDIAC ARREST [None]
  - COUGH [None]
  - NASOPHARYNGITIS [None]
